FAERS Safety Report 7267279-2 (Version None)
Quarter: 2011Q1

REPORT INFORMATION
  Report Type: 
  Country: None (occurrence: None)
  Receive Date: 20110201
  Receipt Date: 20101220
  Transmission Date: 20110831
  Serious: Yes (Other)
  Sender: FDA-Public Use
  Company Number: US-BAYER-201023134NA

PATIENT
  Sex: Female
  Weight: 59 kg

DRUGS (9)
  1. SUMATRIPTAN SUCCINATE [Concomitant]
     Dates: start: 20090619
  2. PROZAC [Concomitant]
     Dates: start: 20081001, end: 20091101
  3. YAZ [Suspect]
     Indication: CONTRACEPTION
  4. YAZ [Suspect]
     Indication: PREMENSTRUAL SYNDROME
     Route: 048
     Dates: start: 20070101, end: 20091001
  5. PRILOSEC [Concomitant]
  6. LORAZEPAM [Concomitant]
     Dosage: STARTED ON SUMMER 2008
     Dates: start: 20080101, end: 20100101
  7. IBUPROFEN [Concomitant]
  8. DICYCLOMINE [Concomitant]
     Dates: start: 20090610
  9. LEXAPRO [Concomitant]
     Dates: start: 20081001, end: 20091101

REACTIONS (7)
  - INFECTION [None]
  - VOMITING [None]
  - ABDOMINAL PAIN UPPER [None]
  - CHOLELITHIASIS [None]
  - NAUSEA [None]
  - CHOLECYSTITIS CHRONIC [None]
  - CHOLESTEROSIS [None]
